FAERS Safety Report 12583019 (Version 1)
Quarter: 2016Q3

REPORT INFORMATION
  Report Type: Spontaneous
  Country: CN (occurrence: CN)
  Receive Date: 20160722
  Receipt Date: 20160722
  Transmission Date: 20161109
  Serious: Yes (Other)
  Sender: FDA-Public Use
  Company Number: CN-BAYER-2016-137519

PATIENT
  Age: 16 Year
  Sex: Male

DRUGS (3)
  1. DOXORUBICIN [Suspect]
     Active Substance: DOXORUBICIN
     Indication: DESMOID TUMOUR
     Dosage: 20 MG/M2, QD (4 DAYS EVERY 28 DAYS)
     Route: 042
     Dates: start: 201404
  2. DACARBAZINE. [Suspect]
     Active Substance: DACARBAZINE
     Indication: DESMOID TUMOUR
     Dosage: 150 MG/M2, QD (4 DAYS EVERY 28 DAYS)
     Route: 042
     Dates: start: 201404
  3. MELOXICAM. [Suspect]
     Active Substance: MELOXICAM
     Indication: DESMOID TUMOUR
     Dosage: 10 MG/M2), UNK
     Dates: start: 20140524

REACTIONS (2)
  - Intestinal perforation [Recovered/Resolved]
  - Product use issue [None]

NARRATIVE: CASE EVENT DATE: 2014
